FAERS Safety Report 16816151 (Version 1)
Quarter: 2019Q3

REPORT INFORMATION
  Report Type: Spontaneous
  Country: BR (occurrence: BR)
  Receive Date: 20190917
  Receipt Date: 20190917
  Transmission Date: 20191005
  Serious: Yes (Hospitalization)
  Sender: FDA-Public Use
  Company Number: PHHY2019BR214519

PATIENT
  Age: 48 Year
  Sex: Female

DRUGS (2)
  1. NILOTINIB [Suspect]
     Active Substance: NILOTINIB
     Indication: CHRONIC MYELOID LEUKAEMIA
     Dosage: 400 MG, BID
     Route: 065
     Dates: start: 20180913
  2. NILOTINIB [Suspect]
     Active Substance: NILOTINIB
     Dosage: 400 MG, BID
     Route: 065
     Dates: start: 20180319

REACTIONS (7)
  - Dyspnoea [Unknown]
  - Myocardial infarction [Unknown]
  - Chest pain [Unknown]
  - Cytogenetic analysis abnormal [Unknown]
  - Arthralgia [Unknown]
  - Orthopnoea [Unknown]
  - Pleural effusion [Unknown]
